FAERS Safety Report 18100631 (Version 2)
Quarter: 2020Q3

REPORT INFORMATION
  Report Type: Spontaneous
  Country: FI (occurrence: FI)
  Receive Date: 20200731
  Receipt Date: 20200920
  Transmission Date: 20201103
  Serious: Yes (Hospitalization, Other)
  Sender: FDA-Public Use
  Company Number: FI-BIOGEN-2020BI00903322

PATIENT
  Age: 24 Year
  Sex: Female

DRUGS (4)
  1. OMEGA FATTY ACID [Concomitant]
     Indication: PRODUCT USED FOR UNKNOWN INDICATION
     Dosage: 2X1
     Route: 065
  2. VITAMIN D [Concomitant]
     Active Substance: VITAMIN D NOS
     Indication: PRODUCT USED FOR UNKNOWN INDICATION
     Route: 065
  3. TECFIDERA [Suspect]
     Active Substance: DIMETHYL FUMARATE
     Indication: MULTIPLE SCLEROSIS
     Route: 048
     Dates: start: 201705
  4. ZINC. [Concomitant]
     Active Substance: ZINC
     Indication: PRODUCT USED FOR UNKNOWN INDICATION
     Dosage: X1
     Route: 065

REACTIONS (4)
  - Lymphocyte count abnormal [Unknown]
  - Papillary thyroid cancer [Unknown]
  - Multiple sclerosis [Unknown]
  - Follicular thyroid cancer [Unknown]

NARRATIVE: CASE EVENT DATE: 20190104
